FAERS Safety Report 5939224-0 (Version None)
Quarter: 2008Q4

REPORT INFORMATION
  Report Type: 
  Country: None (occurrence: None)
  Receive Date: 20081103
  Receipt Date: 20081023
  Transmission Date: 20090506
  Serious: Yes (Hospitalization)
  Sender: FDA-Public Use
  Company Number: FR-PFIZER INC-2008047088

PATIENT
  Sex: Female
  Weight: 57 kg

DRUGS (12)
  1. SU-011,248 [Suspect]
     Indication: BREAST CANCER METASTATIC
     Route: 048
     Dates: start: 20070730, end: 20071022
  2. SU-011,248 [Suspect]
     Dosage: DAILY DOSE:25MG-TEXT:25MGX1-FREQ:ONCE DAILY: CONTINOUS
     Route: 048
     Dates: start: 20071101, end: 20080518
  3. ESCITALOPRAM [Concomitant]
     Indication: ANXIETY
     Route: 048
     Dates: start: 20060215
  4. LORMETAZEPAM [Concomitant]
     Indication: INSOMNIA
     Route: 048
     Dates: start: 20060801
  5. PRAZEPAM [Concomitant]
     Route: 048
     Dates: start: 20060621
  6. CHLORHEXIDINE GLUCONATE [Concomitant]
     Route: 048
     Dates: start: 20070820
  7. SODIUM BICARBONATE [Concomitant]
     Route: 048
     Dates: start: 20070820
  8. LEVOTHYROXINE SODIUM [Concomitant]
     Route: 048
     Dates: start: 20070918
  9. METOPIMAZINE [Concomitant]
     Route: 048
     Dates: start: 20071204
  10. LOPERAMIDE HCL [Concomitant]
     Route: 048
     Dates: start: 20071227
  11. PHLOROGLUCINOL [Concomitant]
     Route: 048
     Dates: start: 20080103
  12. ACETAMINOPHEN [Concomitant]
     Route: 048
     Dates: start: 20080128

REACTIONS (1)
  - ENTEROCOLITIS INFECTIOUS [None]
